FAERS Safety Report 24799061 (Version 1)
Quarter: 2025Q1

REPORT INFORMATION
  Report Type: Report from Study
  Country: US (occurrence: US)
  Receive Date: 20250102
  Receipt Date: 20250102
  Transmission Date: 20250409
  Serious: Yes (Death, Other)
  Sender: GILEAD
  Company Number: US-GILEAD-2024-0698399

PATIENT
  Age: 72 Year
  Sex: Male

DRUGS (1)
  1. AZTREONAM LYSINE [Suspect]
     Active Substance: AZTREONAM LYSINE
     Indication: Bronchiectasis
     Dosage: 1 DOSAGE FORM, TID (28 DAYS ON AND 28 DAYS OFF)
     Route: 055

REACTIONS (2)
  - Death [Fatal]
  - Product use in unapproved indication [Unknown]
